FAERS Safety Report 8021042-3 (Version None)
Quarter: 2011Q4

REPORT INFORMATION
  Report Type: 
  Country: None (occurrence: None)
  Receive Date: 20111229
  Receipt Date: 20111214
  Transmission Date: 20120403
  Serious: Yes (Hospitalization)
  Sender: FDA-Public Use
  Company Number: 2011-554

PATIENT
  Age: 63 Year
  Sex: Male

DRUGS (15)
  1. ATENOLOL [Concomitant]
  2. NITRIDERM (GLYCERYL TRINITRATE) [Concomitant]
  3. ZOPICLONE (ZOPICLONE) [Concomitant]
  4. MORPHINE [Suspect]
     Dosage: 0.05 MG, ONCE/HOUR, INTRATHECAL, MG, ONCE/HOUR, INTRATHECAL
     Route: 037
     Dates: start: 20090514
  5. MORPHINE [Suspect]
     Dosage: 0.05 MG, ONCE/HOUR, INTRATHECAL, MG, ONCE/HOUR, INTRATHECAL
     Route: 037
     Dates: start: 20050101, end: 20090401
  6. ASPIRIN [Concomitant]
  7. TRANSIPEG (MACROGOL) [Concomitant]
  8. OMEPRAZOLE [Concomitant]
  9. PRIALT [Suspect]
     Indication: NEURALGIA
     Dosage: SEE IMAGE
     Route: 037
     Dates: start: 20090512, end: 20090519
  10. PRIALT [Suspect]
     Indication: NEURALGIA
     Dosage: SEE IMAGE
     Route: 037
     Dates: start: 20090425, end: 20090427
  11. PRIALT [Suspect]
     Indication: NEURALGIA
     Dosage: SEE IMAGE
     Route: 037
     Dates: start: 20090519, end: 20090525
  12. PRIALT [Suspect]
     Indication: NEURALGIA
     Dosage: SEE IMAGE
     Route: 037
     Dates: start: 20090412, end: 20090425
  13. PRIALT [Suspect]
     Indication: NEURALGIA
     Dosage: SEE IMAGE
     Route: 037
     Dates: start: 20090427, end: 20090512
  14. AMILORIDE HCL W/HYDROCHLOROTHIAZIDE (AMILORIDE HYDROCHLORIDE HYDROCHLO [Concomitant]
  15. CATAPRES [Suspect]
     Dates: start: 20050101

REACTIONS (17)
  - SPEECH DISORDER [None]
  - INDIFFERENCE [None]
  - HALLUCINATION [None]
  - CONFUSIONAL STATE [None]
  - DYSPHONIA [None]
  - DISORIENTATION [None]
  - APHASIA [None]
  - AGITATION [None]
  - GASTROINTESTINAL DISORDER [None]
  - ESCHERICHIA SEPSIS [None]
  - ABNORMAL BEHAVIOUR [None]
  - SUICIDE ATTEMPT [None]
  - DYSPHORIA [None]
  - AGGRESSION [None]
  - INADEQUATE ANALGESIA [None]
  - VISUAL IMPAIRMENT [None]
  - URINARY TRACT INFECTION [None]
